FAERS Safety Report 4545363-1 (Version None)
Quarter: 2005Q1

REPORT INFORMATION
  Report Type: 
  Country: None (occurrence: None)
  Receive Date: 20050103
  Receipt Date: 20041215
  Transmission Date: 20050727
  Serious: Yes (Hospitalization)
  Sender: FDA-Public Use
  Company Number: F01200400829

PATIENT
  Age: 76 Year
  Sex: Female

DRUGS (9)
  1. (OXALIPLATIN) - SOLUTION - 130 MG/M2 [Suspect]
     Indication: COLORECTAL CANCER METASTATIC
     Dosage: 130 MG/M2 Q3W, INTRAVENOUS NOS
     Route: 042
     Dates: start: 20040424, end: 20040324
  2. (CAPECITABINE) - TABLET - 1000 MG/M2 [Suspect]
     Dosage: 100 MG/M2 TWICE A DAY FROM DAY 1 TO DAY 15, Q3W ORAL
     Route: 048
     Dates: start: 20040324, end: 20040404
  3. IMODIUM [Concomitant]
  4. ADVAIR (FLUTICASONE PROPIONATE/SALMETEROL XINAFOATE) [Concomitant]
  5. CELEBREX [Concomitant]
  6. MULTI-VITAMINS [Concomitant]
  7. ZOPICLONE [Concomitant]
  8. GRAVERGOL (CAFFEINE/DIMENHYDRINATE/ERGOTAMINE TARTRATE) [Concomitant]
  9. FLONASE [Concomitant]

REACTIONS (4)
  - ENTERITIS [None]
  - PALMAR-PLANTAR ERYTHRODYSAESTHESIA SYNDROME [None]
  - STOMATITIS [None]
  - TINNITUS [None]
